FAERS Safety Report 4358519-8 (Version None)
Quarter: 2004Q2

REPORT INFORMATION
  Report Type: 
  Country: None (occurrence: None)
  Receive Date: 20040514
  Receipt Date: 20040506
  Transmission Date: 20050107
  Serious: Yes (Other)
  Sender: FDA-Public Use
  Company Number: NO-GLAXOSMITHKLINE-B0332132A

PATIENT
  Age: 4 Week

DRUGS (1)
  1. ZANTAC [Suspect]
     Dosage: 150MG THREE TIMES PER DAY

REACTIONS (3)
  - ALANINE AMINOTRANSFERASE INCREASED [None]
  - ASPARTATE AMINOTRANSFERASE INCREASED [None]
  - DRUG EXPOSURE DURING PREGNANCY [None]
